FAERS Safety Report 11462023 (Version 1)
Quarter: 2015Q3

REPORT INFORMATION
  Report Type: Spontaneous
  Country: US (occurrence: US)
  Receive Date: 20150831
  Receipt Date: 20150831
  Transmission Date: 20151125
  Serious: No
  Sender: FDA-Public Use
  Company Number: US-ELI_LILLY_AND_COMPANY-US201009005389

PATIENT
  Sex: Male

DRUGS (1)
  1. CYMBALTA [Suspect]
     Active Substance: DULOXETINE HYDROCHLORIDE
     Indication: BACK PAIN
     Dosage: 60 MG, DAILY (1/D)

REACTIONS (9)
  - Dizziness postural [Unknown]
  - Off label use [Not Recovered/Not Resolved]
  - Constipation [Unknown]
  - Oropharyngeal pain [Unknown]
  - Flatulence [Unknown]
  - Headache [Not Recovered/Not Resolved]
  - Pollakiuria [Unknown]
  - Dry mouth [Unknown]
  - Chills [Unknown]
